FAERS Safety Report 17470530 (Version 4)
Quarter: 2020Q1

REPORT INFORMATION
  Report Type: Spontaneous
  Country: US (occurrence: US)
  Receive Date: 20200228
  Receipt Date: 20200328
  Transmission Date: 20200409
  Serious: Yes (Other)
  Sender: FDA-Public Use
  Company Number: NVSC2020US051595

PATIENT
  Age: 92 Year
  Sex: Female

DRUGS (3)
  1. SPIRONOLACTONE. [Suspect]
     Active Substance: SPIRONOLACTONE
     Indication: HYPERTENSION
     Dosage: QD
     Route: 048
  2. BEOVU [Suspect]
     Active Substance: BROLUCIZUMAB-DBLL
     Dosage: 6 MG, QD
     Route: 047
     Dates: start: 20200114, end: 20200218
  3. BEOVU [Suspect]
     Active Substance: BROLUCIZUMAB-DBLL
     Indication: NEOVASCULAR AGE-RELATED MACULAR DEGENERATION
     Dosage: UNK, Q4W
     Route: 031
     Dates: start: 20191220, end: 20200121

REACTIONS (14)
  - Vitreoretinal traction syndrome [Unknown]
  - Eye pruritus [Unknown]
  - Vitreous opacities [Unknown]
  - Uveitis [Recovered/Resolved]
  - Retinal artery occlusion [Unknown]
  - Inflammation [Unknown]
  - Subretinal fibrosis [Unknown]
  - Photopsia [Unknown]
  - Mass [Unknown]
  - Vision blurred [Unknown]
  - Retinal vasculitis [Recovering/Resolving]
  - Vitreous floaters [Unknown]
  - Aneurysm [Unknown]
  - Vitreous floaters [Recovering/Resolving]

NARRATIVE: CASE EVENT DATE: 20200205
